FAERS Safety Report 7719137-4 (Version None)
Quarter: 2011Q3

REPORT INFORMATION
  Report Type: 
  Country: None (occurrence: None)
  Receive Date: 20110824
  Receipt Date: 20110811
  Transmission Date: 20111222
  Serious: Yes (Hospitalization)
  Sender: FDA-Public Use
  Company Number: UCM201108-000053

PATIENT
  Age: 65 Year
  Sex: Female

DRUGS (2)
  1. CITALOPRAM HYDROBROMIDE [Suspect]
     Indication: DEPRESSION
     Dosage: 20MG/DAY
  2. TOPIRAMATE [Suspect]
     Indication: COGNITIVE DISORDER
     Dosage: 50 MG/DAY

REACTIONS (7)
  - SEROTONIN SYNDROME [None]
  - IRRITABILITY [None]
  - OFF LABEL USE [None]
  - CONFUSIONAL STATE [None]
  - TREMOR [None]
  - MYOCLONUS [None]
  - DRUG INTERACTION [None]
